FAERS Safety Report 7039289-1 (Version None)
Quarter: 2010Q4

REPORT INFORMATION
  Report Type: 
  Country: None (occurrence: None)
  Receive Date: 20101012
  Receipt Date: 20100902
  Transmission Date: 20110411
  Serious: Yes (Death, Hospitalization, Other)
  Sender: FDA-Public Use
  Company Number: US-BAXTER-2009BH019829

PATIENT
  Age: 68 Year
  Sex: Male

DRUGS (60)
  1. HEPARIN SODIUM INJECTION [Suspect]
     Indication: CARDIAC DISORDER
     Route: 065
     Dates: start: 20070126, end: 20070126
  2. HEPARIN SODIUM INJECTION [Suspect]
     Route: 065
     Dates: start: 20070129, end: 20070129
  3. HEPARIN SODIUM INJECTION [Suspect]
     Route: 065
     Dates: start: 20070222, end: 20070222
  4. HEPARIN SODIUM INJECTION [Suspect]
     Route: 065
     Dates: start: 20070301, end: 20070301
  5. HEPARIN SODIUM INJECTION [Suspect]
     Route: 065
     Dates: start: 20070302, end: 20070302
  6. HEPARIN SODIUM INJECTION [Suspect]
     Route: 065
     Dates: start: 20070306, end: 20070306
  7. HEPARIN SODIUM INJECTION [Suspect]
     Route: 065
     Dates: start: 20070412, end: 20070412
  8. HEPARIN SODIUM INJECTION [Suspect]
     Route: 065
     Dates: start: 20070422, end: 20070422
  9. HEPARIN SODIUM INJECTION [Suspect]
     Route: 042
     Dates: start: 20070402, end: 20070412
  10. HEPARIN SODIUM 5,000 UNITS IN DEXTROSE 5% [Suspect]
     Indication: CARDIAC DISORDER
     Route: 041
     Dates: start: 20080126, end: 20080127
  11. HEPARIN SODIUM 5,000 UNITS IN DEXTROSE 5% [Suspect]
     Route: 041
     Dates: start: 20080222, end: 20080223
  12. HEPARIN SODIUM 5,000 UNITS IN DEXTROSE 5% [Suspect]
     Route: 041
     Dates: start: 20080423, end: 20080423
  13. HEPARIN SODIUM 5,000 UNITS IN DEXTROSE 5% [Suspect]
     Route: 041
     Dates: start: 20080425, end: 20080425
  14. HEPARIN SODIUM 5,000 UNITS IN DEXTROSE 5% [Suspect]
     Route: 041
     Dates: start: 20080428, end: 20080428
  15. HEPARIN SODIUM 5,000 UNITS IN DEXTROSE 5% [Suspect]
     Route: 065
     Dates: start: 20070126, end: 20070126
  16. HEPARIN SODIUM 5,000 UNITS IN DEXTROSE 5% [Suspect]
     Route: 065
     Dates: start: 20070222, end: 20070222
  17. HEPARIN SODIUM 5,000 UNITS IN DEXTROSE 5% [Suspect]
     Route: 065
     Dates: start: 20070301, end: 20070305
  18. HEPARIN SODIUM 5,000 UNITS IN DEXTROSE 5% [Suspect]
     Route: 065
     Dates: start: 20070412, end: 20070412
  19. HEPARIN SODIUM 5,000 UNITS IN DEXTROSE 5% [Suspect]
     Route: 065
     Dates: start: 20070422, end: 20070422
  20. HEPARIN SODIUM 5,000 UNITS IN DEXTROSE 5% [Suspect]
     Route: 065
     Dates: start: 20070423, end: 20070423
  21. HEPARIN SODIUM 5,000 UNITS IN DEXTROSE 5% [Suspect]
     Route: 065
     Dates: start: 20070425, end: 20070425
  22. HEPARIN SODIUM 5,000 UNITS IN DEXTROSE 5% [Suspect]
     Route: 065
     Dates: start: 20070428, end: 20070428
  23. HEPARIN SODIUM [Suspect]
     Indication: CARDIAC DISORDER
     Route: 065
     Dates: start: 20070301, end: 20070301
  24. HEPARIN SODIUM INJECTION [Suspect]
     Route: 065
     Dates: start: 20070307, end: 20070311
  25. ASPIRIN [Concomitant]
     Indication: PRODUCT USED FOR UNKNOWN INDICATION
     Route: 065
  26. CAPTOPRIL [Concomitant]
     Indication: PRODUCT USED FOR UNKNOWN INDICATION
     Route: 048
  27. PLAVIX [Concomitant]
     Indication: PRODUCT USED FOR UNKNOWN INDICATION
     Route: 065
  28. DEXAMETHASONE [Concomitant]
     Indication: PRODUCT USED FOR UNKNOWN INDICATION
     Route: 065
  29. PANTOPRAZOLE [Concomitant]
     Indication: PRODUCT USED FOR UNKNOWN INDICATION
     Route: 065
  30. LEVAQUIN [Concomitant]
     Indication: PRODUCT USED FOR UNKNOWN INDICATION
     Route: 065
  31. MAGNESIUM [Concomitant]
     Indication: PRODUCT USED FOR UNKNOWN INDICATION
     Route: 065
  32. SIMVASTATIN [Concomitant]
     Indication: PRODUCT USED FOR UNKNOWN INDICATION
     Route: 065
  33. ALDACTONE [Concomitant]
     Indication: PRODUCT USED FOR UNKNOWN INDICATION
     Route: 065
  34. LOPRESSOR [Concomitant]
     Indication: PRODUCT USED FOR UNKNOWN INDICATION
     Route: 065
  35. BUMEX [Concomitant]
     Indication: PRODUCT USED FOR UNKNOWN INDICATION
     Route: 065
  36. ALBUTEROL [Concomitant]
     Indication: PRODUCT USED FOR UNKNOWN INDICATION
     Route: 065
  37. ATROVENT [Concomitant]
     Indication: PRODUCT USED FOR UNKNOWN INDICATION
     Route: 065
  38. DIGOXIN [Concomitant]
     Indication: PRODUCT USED FOR UNKNOWN INDICATION
     Route: 065
  39. MECLIZINE [Concomitant]
     Indication: PRODUCT USED FOR UNKNOWN INDICATION
     Route: 065
  40. TYLENOL [Concomitant]
     Indication: PRODUCT USED FOR UNKNOWN INDICATION
     Route: 065
  41. XANAX [Concomitant]
     Indication: PRODUCT USED FOR UNKNOWN INDICATION
     Route: 065
  42. ATROPINE [Concomitant]
     Indication: PRODUCT USED FOR UNKNOWN INDICATION
     Route: 065
  43. DULCOLAX [Concomitant]
     Indication: PRODUCT USED FOR UNKNOWN INDICATION
     Route: 065
  44. MAALOX                                  /USA/ [Concomitant]
     Indication: PRODUCT USED FOR UNKNOWN INDICATION
     Route: 065
  45. VERSED [Concomitant]
     Indication: PRODUCT USED FOR UNKNOWN INDICATION
     Route: 065
  46. MILK OF MAGNESIA TAB [Concomitant]
     Indication: PRODUCT USED FOR UNKNOWN INDICATION
     Route: 065
  47. MORPHINE [Concomitant]
     Indication: PRODUCT USED FOR UNKNOWN INDICATION
     Route: 065
  48. NITROSTAT [Concomitant]
     Indication: PRODUCT USED FOR UNKNOWN INDICATION
     Route: 065
  49. SENOKOT                                 /USA/ [Concomitant]
     Indication: PRODUCT USED FOR UNKNOWN INDICATION
     Route: 065
  50. AMBIEN [Concomitant]
     Indication: PRODUCT USED FOR UNKNOWN INDICATION
     Route: 065
  51. REGLAN [Concomitant]
     Indication: PRODUCT USED FOR UNKNOWN INDICATION
     Route: 065
  52. NOVOLOG [Concomitant]
     Indication: PRODUCT USED FOR UNKNOWN INDICATION
     Route: 065
  53. XOPENEX [Concomitant]
     Indication: PRODUCT USED FOR UNKNOWN INDICATION
     Route: 065
  54. LOPRESSOR [Concomitant]
     Route: 065
  55. KEPPRA [Concomitant]
     Indication: PRODUCT USED FOR UNKNOWN INDICATION
     Route: 065
  56. FORTAZ [Concomitant]
     Indication: PRODUCT USED FOR UNKNOWN INDICATION
     Route: 065
  57. BUMEX [Concomitant]
     Route: 065
  58. SOLU-MEDROL [Concomitant]
     Indication: PRODUCT USED FOR UNKNOWN INDICATION
     Route: 065
  59. SODIUM CHLORIDE [Concomitant]
     Indication: PRODUCT USED FOR UNKNOWN INDICATION
     Route: 065
  60. TEARISOL [Concomitant]
     Indication: PRODUCT USED FOR UNKNOWN INDICATION
     Route: 065

REACTIONS (21)
  - ABDOMINAL PAIN UPPER [None]
  - ACUTE RESPIRATORY FAILURE [None]
  - ANAEMIA [None]
  - CHRONIC OBSTRUCTIVE PULMONARY DISEASE [None]
  - CHRONIC RESPIRATORY FAILURE [None]
  - CONVULSION [None]
  - DEEP VEIN THROMBOSIS [None]
  - DIZZINESS [None]
  - ENCEPHALOPATHY [None]
  - GAIT DISTURBANCE [None]
  - HEPATIC FAILURE [None]
  - HYPERSENSITIVITY [None]
  - LUNG ADENOCARCINOMA METASTATIC [None]
  - LUNG CARCINOMA CELL TYPE UNSPECIFIED STAGE IV [None]
  - PNEUMONIA [None]
  - PNEUMONITIS [None]
  - RENAL FAILURE ACUTE [None]
  - STREPTOCOCCAL SEPSIS [None]
  - THROMBOCYTOPENIA [None]
  - TROPONIN INCREASED [None]
  - UPPER GASTROINTESTINAL HAEMORRHAGE [None]
